FAERS Safety Report 25619292 (Version 1)
Quarter: 2025Q3

REPORT INFORMATION
  Report Type: Spontaneous
  Country: US (occurrence: US)
  Receive Date: 20250729
  Receipt Date: 20250729
  Transmission Date: 20251020
  Serious: Yes (Other)
  Sender: HIKMA
  Company Number: US-HIKMA PHARMACEUTICALS USA INC.-US-H14001-25-08761

PATIENT
  Sex: Female

DRUGS (12)
  1. ATIVAN [Suspect]
     Active Substance: LORAZEPAM
     Indication: Product used for unknown indication
     Route: 042
     Dates: start: 20241025
  2. ALBUTEROL [Concomitant]
     Active Substance: ALBUTEROL
     Indication: Product used for unknown indication
     Route: 065
  3. ASPIRIN [Concomitant]
     Active Substance: ASPIRIN
     Indication: Product used for unknown indication
     Route: 065
  4. BACLOFEN [Concomitant]
     Active Substance: BACLOFEN
     Indication: Product used for unknown indication
     Route: 065
  5. CYCLOSPORINE [Concomitant]
     Active Substance: CYCLOSPORINE
     Indication: Product used for unknown indication
     Route: 065
  6. DIAZEPAM [Concomitant]
     Active Substance: DIAZEPAM
     Indication: Product used for unknown indication
     Route: 065
  7. GALCANEZUMAB [Concomitant]
     Active Substance: GALCANEZUMAB
     Indication: Product used for unknown indication
     Route: 065
  8. MODAFINIL [Concomitant]
     Active Substance: MODAFINIL
     Indication: Product used for unknown indication
     Route: 065
  9. SERTRALINE [Concomitant]
     Active Substance: SERTRALINE HYDROCHLORIDE
     Indication: Product used for unknown indication
     Route: 065
  10. SUMATRIPTAN [Concomitant]
     Active Substance: SUMATRIPTAN
     Indication: Product used for unknown indication
     Route: 065
  11. TIZANIDINE [Concomitant]
     Active Substance: TIZANIDINE
     Indication: Product used for unknown indication
     Route: 065
  12. VENLAFAXINE [Concomitant]
     Active Substance: VENLAFAXINE HYDROCHLORIDE
     Indication: Product used for unknown indication
     Route: 065

REACTIONS (21)
  - Dental discomfort [Unknown]
  - Cerebrovascular accident [Unknown]
  - Infusion related reaction [Unknown]
  - Dysphagia [Unknown]
  - Radial nerve palsy [Unknown]
  - Balance disorder [Unknown]
  - Nervous system disorder [Unknown]
  - Bacterial vaginosis [Unknown]
  - Seizure [Unknown]
  - Diplopia [Unknown]
  - Photophobia [Unknown]
  - Loss of consciousness [Recovered/Resolved]
  - Speech disorder [Unknown]
  - Respiratory arrest [Unknown]
  - Vision blurred [Unknown]
  - Condition aggravated [Unknown]
  - Memory impairment [Unknown]
  - Condition aggravated [Unknown]
  - Tremor [Unknown]
  - Pain [Unknown]
  - Fatigue [Unknown]
